FAERS Safety Report 4300077-8 (Version None)
Quarter: 2004Q1

REPORT INFORMATION
  Report Type: 
  Country: None (occurrence: None)
  Receive Date: 20040218
  Receipt Date: 20040205
  Transmission Date: 20041129
  Serious: Yes (Life-Threatening, Hospitalization, Disabling, Congenital Anomaly, Other)
  Sender: FDA-Public Use
  Company Number: A125155

PATIENT
  Age: 3 Year
  Sex: Male
  Weight: 15 kg

DRUGS (4)
  1. ZITHROMAX [Suspect]
     Indication: UPPER RESPIRATORY TRACT INFECTION
     Dosage: (DAILY), ORAL
     Route: 048
     Dates: start: 20010501, end: 20011017
  2. ERYTHROMYCIN [Suspect]
     Indication: ILL-DEFINED DISORDER
  3. CHLORAL HYDRATE (CHLORAL HYDRATE) [Suspect]
     Indication: SLEEP DISORDER
     Dosage: 500 MG (PRN), ORAL
     Route: 048
     Dates: start: 20010926, end: 20011013
  4. CHLORAMPHENICOL [Concomitant]

REACTIONS (26)
  - ABNORMAL BEHAVIOUR [None]
  - AGITATION [None]
  - ANXIETY [None]
  - ATELECTASIS [None]
  - BIOPSY OESOPHAGUS ABNORMAL [None]
  - COMPUTERISED TOMOGRAM ABNORMAL [None]
  - CONJUNCTIVAL HYPERAEMIA [None]
  - EMOTIONAL DISTRESS [None]
  - EYE IRRITATION [None]
  - EYE REDNESS [None]
  - EYE SWELLING [None]
  - FEAR [None]
  - GASTRIC HAEMORRHAGE [None]
  - HAEMODYNAMIC INSTABILITY [None]
  - KERATOCONJUNCTIVITIS SICCA [None]
  - LACRIMATION DECREASED [None]
  - MASS [None]
  - NERVOUSNESS [None]
  - NIGHTMARE [None]
  - OBSTRUCTIVE AIRWAYS DISORDER [None]
  - OESOPHAGITIS [None]
  - SCAR [None]
  - SLEEP DISORDER [None]
  - STEVENS-JOHNSON SYNDROME [None]
  - STRESS SYMPTOMS [None]
  - VISUAL ACUITY REDUCED [None]
